FAERS Safety Report 4287030-8 (Version None)
Quarter: 2004Q1

REPORT INFORMATION
  Report Type: 
  Country: None (occurrence: None)
  Receive Date: 20040205
  Receipt Date: 20040121
  Transmission Date: 20041129
  Serious: Yes (Hospitalization)
  Sender: FDA-Public Use
  Company Number: A03200400159

PATIENT
  Age: 67 Year
  Sex: Male
  Weight: 81.6475 kg

DRUGS (1)
  1. AMBIEN [Suspect]
     Dosage: 10 MG ONCE - ORAL
     Route: 048
     Dates: start: 20031003, end: 20031003

REACTIONS (4)
  - AMNESIA [None]
  - DELIRIUM [None]
  - POST-TRAUMATIC STRESS DISORDER [None]
  - PSYCHOTIC DISORDER [None]
